FAERS Safety Report 20559078 (Version 1)
Quarter: 2022Q1

REPORT INFORMATION
  Report Type: Spontaneous
  Country: US (occurrence: US)
  Receive Date: 20220307
  Receipt Date: 20220307
  Transmission Date: 20220423
  Serious: No
  Sender: FDA-Public Use
  Company Number: US-LUPIN PHARMACEUTICALS INC.-2022-02737

PATIENT
  Age: 20 Year
  Sex: Male

DRUGS (25)
  1. HYDROCORTISONE [Suspect]
     Active Substance: HYDROCORTISONE
     Indication: Oral candidiasis
     Dosage: UNK
     Route: 065
  2. HYDROCORTISONE [Suspect]
     Active Substance: HYDROCORTISONE
     Indication: Cheilitis
  3. NYSTATIN [Suspect]
     Active Substance: NYSTATIN
     Indication: Oral candidiasis
     Dosage: UNK
     Route: 065
  4. NYSTATIN [Suspect]
     Active Substance: NYSTATIN
     Indication: Cheilitis
  5. SULFAMETHOXAZOLE AND TRIMETHOPRIM [Suspect]
     Active Substance: SULFAMETHOXAZOLE\TRIMETHOPRIM
     Indication: Oral candidiasis
     Dosage: UNK
     Route: 065
  6. SULFAMETHOXAZOLE AND TRIMETHOPRIM [Suspect]
     Active Substance: SULFAMETHOXAZOLE\TRIMETHOPRIM
     Indication: Cheilitis
  7. AZITHROMYCIN [Suspect]
     Active Substance: AZITHROMYCIN
     Indication: Oral candidiasis
     Dosage: UNK
     Route: 065
  8. AZITHROMYCIN [Suspect]
     Active Substance: AZITHROMYCIN
     Indication: Cheilitis
  9. MOMETASONE [Suspect]
     Active Substance: MOMETASONE
     Indication: Oral candidiasis
     Dosage: UNK
     Route: 065
  10. MOMETASONE [Suspect]
     Active Substance: MOMETASONE
     Indication: Cheilitis
  11. PETROLEUM JELLY [Suspect]
     Active Substance: PETROLATUM
     Indication: Oral candidiasis
     Dosage: UNK
     Route: 065
  12. PETROLEUM JELLY [Suspect]
     Active Substance: PETROLATUM
     Indication: Cheilitis
  13. PETROLEUM JELLY [Suspect]
     Active Substance: PETROLATUM
     Indication: Candida infection
  14. PREDNISONE [Suspect]
     Active Substance: PREDNISONE
     Indication: Oral candidiasis
     Dosage: UNK
     Route: 065
  15. PREDNISONE [Suspect]
     Active Substance: PREDNISONE
     Indication: Cheilitis
  16. VITAMIN E [Suspect]
     Active Substance: .ALPHA.-TOCOPHEROL
     Indication: Oral candidiasis
     Dosage: UNK
     Route: 065
  17. VITAMIN E [Suspect]
     Active Substance: .ALPHA.-TOCOPHEROL
     Indication: Cheilitis
  18. FLUCONAZOLE [Suspect]
     Active Substance: FLUCONAZOLE
     Indication: Oral candidiasis
     Dosage: UNK
     Route: 065
  19. FLUCONAZOLE [Suspect]
     Active Substance: FLUCONAZOLE
     Indication: Candida infection
  20. KETOCONAZOLE [Suspect]
     Active Substance: KETOCONAZOLE
     Indication: Oral candidiasis
     Dosage: UNK
     Route: 065
  21. KETOCONAZOLE [Suspect]
     Active Substance: KETOCONAZOLE
     Indication: Candida infection
  22. TACROLIMUS [Concomitant]
     Active Substance: TACROLIMUS
     Indication: Oral candidiasis
     Dosage: UNK, BID (2 TIMES DAILY)
     Route: 065
  23. TACROLIMUS [Concomitant]
     Active Substance: TACROLIMUS
     Indication: Candida infection
  24. MUPIROCIN [Concomitant]
     Active Substance: MUPIROCIN
     Indication: Product used for unknown indication
     Dosage: UNK FOR 14 DAYS
     Route: 065
  25. DULOXETINE [Concomitant]
     Active Substance: DULOXETINE
     Indication: Product used for unknown indication
     Dosage: 30 MILLIGRAM, QD
     Route: 065

REACTIONS (3)
  - Drug ineffective for unapproved indication [Unknown]
  - Off label use [Unknown]
  - Drug ineffective [Unknown]
